FAERS Safety Report 7335730-5 (Version None)
Quarter: 2011Q1

REPORT INFORMATION
  Report Type: 
  Country: None (occurrence: None)
  Receive Date: 20110307
  Receipt Date: 20110224
  Transmission Date: 20110831
  Serious: Yes (Hospitalization)
  Sender: FDA-Public Use
  Company Number: B0702886A

PATIENT
  Age: 44 Year
  Sex: Female
  Weight: 60 kg

DRUGS (3)
  1. DIAZEPAM [Suspect]
     Indication: MAJOR DEPRESSION
     Dosage: 200MG PER DAY
     Route: 065
  2. VENLAFAXINE [Suspect]
     Indication: MAJOR DEPRESSION
     Dosage: 4.5G PER DAY
     Route: 065
  3. LAMOTRIGINE [Suspect]
     Indication: MAJOR DEPRESSION
     Dosage: 20G PER DAY
     Route: 065

REACTIONS (12)
  - HYPERREFLEXIA [None]
  - SUICIDE ATTEMPT [None]
  - GRAND MAL CONVULSION [None]
  - DEPRESSED LEVEL OF CONSCIOUSNESS [None]
  - TOXICITY TO VARIOUS AGENTS [None]
  - SEROTONIN SYNDROME [None]
  - BODY TEMPERATURE INCREASED [None]
  - ANTICONVULSANT DRUG LEVEL ABOVE THERAPEUTIC [None]
  - LOSS OF CONSCIOUSNESS [None]
  - MUSCLE RIGIDITY [None]
  - BLOOD CREATINE PHOSPHOKINASE INCREASED [None]
  - MYOCLONUS [None]
